FAERS Safety Report 19687212 (Version 6)
Quarter: 2022Q1

REPORT INFORMATION
  Report Type: Spontaneous
  Country: US (occurrence: US)
  Receive Date: 20210811
  Receipt Date: 20220328
  Transmission Date: 20220423
  Serious: No
  Sender: FDA-Public Use
  Company Number: US-PFIZER INC-202100929871

PATIENT
  Age: 47 Year
  Sex: Female

DRUGS (5)
  1. IBRANCE [Suspect]
     Active Substance: PALBOCICLIB
     Indication: Breast cancer metastatic
     Dosage: UNK
     Dates: start: 20210301
  2. IBRANCE [Suspect]
     Active Substance: PALBOCICLIB
     Dosage: 125 MG
     Dates: start: 20210415
  3. IBRANCE [Suspect]
     Active Substance: PALBOCICLIB
     Dosage: 125 MG
     Dates: start: 20210517
  4. ZOLADEX [Suspect]
     Active Substance: GOSERELIN ACETATE
     Indication: Breast cancer metastatic
     Dosage: UNK
     Dates: start: 20210301
  5. FASLODEX [Suspect]
     Active Substance: FULVESTRANT
     Indication: Breast cancer metastatic
     Dosage: UNK
     Dates: start: 20210301

REACTIONS (6)
  - White blood cell count decreased [Unknown]
  - COVID-19 [Unknown]
  - Fatigue [Not Recovered/Not Resolved]
  - Abdominal discomfort [Not Recovered/Not Resolved]
  - Back injury [Unknown]
  - Neoplasm progression [Unknown]
